FAERS Safety Report 7981250-4 (Version None)
Quarter: 2011Q4

REPORT INFORMATION
  Report Type: 
  Country: None (occurrence: None)
  Receive Date: 20111129
  Receipt Date: 20110425
  Transmission Date: 20120403
  Serious: Yes (Other)
  Sender: FDA-Public Use
  Company Number: AUR-APL-2011-01457

PATIENT
  Age: 63 Year
  Sex: Male
  Weight: 86.17 kg

DRUGS (2)
  1. MELOXICAM [Suspect]
     Indication: KNEE ARTHROPLASTY
     Dosage: 15MG-DAILY-ORAL
     Route: 048
     Dates: start: 20100101, end: 20110301
  2. MELOXICAM [Suspect]
     Indication: ARTHRITIS
     Dosage: 15MG-DAILY-ORAL
     Route: 048
     Dates: start: 20100101, end: 20110301

REACTIONS (1)
  - GASTRIC HAEMORRHAGE [None]
